FAERS Safety Report 20558004 (Version 1)
Quarter: 2022Q1

REPORT INFORMATION
  Report Type: Spontaneous
  Country: DE (occurrence: DE)
  Receive Date: 20220307
  Receipt Date: 20220307
  Transmission Date: 20220423
  Serious: Yes (Other)
  Sender: FDA-Public Use
  Company Number: DE-NOVARTISPH-NVSC2022DE024627

PATIENT
  Sex: Female

DRUGS (2)
  1. BEOVU [Suspect]
     Active Substance: BROLUCIZUMAB-DBLL
     Indication: Neovascular age-related macular degeneration
     Dosage: INJCTION IN RIGHT EYE
     Route: 065
     Dates: start: 20211223
  2. BEOVU [Suspect]
     Active Substance: BROLUCIZUMAB-DBLL
     Dosage: INJECTION IN LEFT EYE
     Route: 065
     Dates: start: 20220110

REACTIONS (11)
  - Retinal vasculitis [Not Recovered/Not Resolved]
  - Visual impairment [Unknown]
  - Chorioretinitis [Not Recovered/Not Resolved]
  - Uveitis [Not Recovered/Not Resolved]
  - Visual acuity reduced [Recovering/Resolving]
  - Retinal exudates [Unknown]
  - Retinal artery occlusion [Not Recovered/Not Resolved]
  - Vitreous opacities [Unknown]
  - Retinal perivascular sheathing [Unknown]
  - Anterior chamber cell [Unknown]
  - Vitreous floaters [Unknown]

NARRATIVE: CASE EVENT DATE: 20220120
